FAERS Safety Report 7970404-9 (Version None)
Quarter: 2011Q4

REPORT INFORMATION
  Report Type: 
  Country: None (occurrence: None)
  Receive Date: 20111212
  Receipt Date: 20111201
  Transmission Date: 20120403
  Serious: Yes (Hospitalization, Other)
  Sender: FDA-Public Use
  Company Number: PHHY2011DE81324

PATIENT
  Sex: Female

DRUGS (9)
  1. VIGANTOLETTEN ^BAYER^ [Concomitant]
     Indication: CYSTIC FIBROSIS
     Dosage: 1000 MG, QD
     Route: 048
  2. SODIUM CHLORIDE [Concomitant]
     Dosage: 1 MG QD
  3. TOBI [Suspect]
     Indication: CYSTIC FIBROSIS
     Dosage: 28 MG, BID
     Dates: start: 20110908, end: 20110908
  4. ALBUTEROL SULFATE AUTOHALER [Concomitant]
     Dosage: 1 DF, BID
  5. OSSOFORTIN [Concomitant]
     Indication: CYSTIC FIBROSIS
     Dosage: 1 DF, BID
     Route: 048
  6. ZINC [Concomitant]
     Dosage: 5 MG/10 MG, QD
     Route: 048
  7. URSO 250 [Concomitant]
     Indication: CYSTIC FIBROSIS
     Dosage: 1600 MG, QD
     Route: 048
  8. MAGNESIUM SULFATE [Concomitant]
     Indication: CYSTIC FIBROSIS
     Dosage: 400 MG, QD
     Route: 048
  9. SELENIUM [Concomitant]
     Dosage: 5 MG/ 10 MG, QD
     Route: 048

REACTIONS (6)
  - MUSCLE SPASMS [None]
  - HEADACHE [None]
  - SOMNOLENCE [None]
  - NEUROLOGICAL SYMPTOM [None]
  - PARESIS [None]
  - VISUAL IMPAIRMENT [None]
